FAERS Safety Report 6015305-0 (Version None)
Quarter: 2008Q4

REPORT INFORMATION
  Report Type: 
  Country: None (occurrence: None)
  Receive Date: 20081222
  Receipt Date: 20081215
  Transmission Date: 20090506
  Serious: Yes (Hospitalization)
  Sender: FDA-Public Use
  Company Number: US-ASTRAZENECA-2008UW27986

PATIENT
  Age: 54 Year
  Sex: Female
  Weight: 72.6 kg

DRUGS (5)
  1. METOPROLOL SUCCINATE [Suspect]
     Indication: HYPERTENSION
     Route: 048
  2. PLAVIX [Concomitant]
  3. LOVAXIL [Concomitant]
  4. PRAVASTATIN [Concomitant]
  5. ASPIRIN [Concomitant]

REACTIONS (4)
  - BLOOD PRESSURE INCREASED [None]
  - FEELING ABNORMAL [None]
  - HEART VALVE INCOMPETENCE [None]
  - TENSION HEADACHE [None]
